FAERS Safety Report 6223651-0 (Version None)
Quarter: 2009Q2

REPORT INFORMATION
  Report Type: 
  Country: None (occurrence: None)
  Receive Date: 20090611
  Receipt Date: 20090306
  Transmission Date: 20091009
  Serious: No
  Sender: FDA-Public Use
  Company Number: US-ABBOTT-08P-163-0470429-00

PATIENT
  Sex: Female
  Weight: 118.18 kg

DRUGS (11)
  1. HUMIRA [Suspect]
     Indication: RHEUMATOID ARTHRITIS
     Route: 058
     Dates: start: 20080331
  2. PREDNISONE [Concomitant]
     Indication: RHEUMATOID ARTHRITIS
     Route: 048
  3. ALLERGY SHOTS [Concomitant]
     Indication: HYPERSENSITIVITY
     Route: 048
  4. ASTELIN [Concomitant]
     Indication: HYPERSENSITIVITY
     Route: 045
  5. ESTROGEN [Concomitant]
     Indication: HORMONE REPLACEMENT THERAPY
     Route: 048
  6. CLARITIN [Concomitant]
     Indication: HYPERSENSITIVITY
     Route: 048
  7. LISINOPRIL [Concomitant]
     Indication: HYPERTENSION
     Route: 048
  8. CLONIDINE [Concomitant]
     Indication: HYPERTENSION
     Route: 048
  9. AMILERIDE [Concomitant]
     Indication: DIURETIC THERAPY
     Route: 048
  10. ALLOPURINOL [Concomitant]
     Indication: GOUT
     Route: 048
  11. CELEBREX [Concomitant]
     Indication: RHEUMATOID ARTHRITIS

REACTIONS (5)
  - BREAST DISORDER [None]
  - BREAST MASS [None]
  - BREAST TENDERNESS [None]
  - DEPRESSION [None]
  - PRURITUS [None]
